FAERS Safety Report 21386091 (Version 1)
Quarter: 2022Q3

REPORT INFORMATION
  Report Type: Spontaneous
  Country: AU (occurrence: AU)
  Receive Date: 20220928
  Receipt Date: 20220928
  Transmission Date: 20221027
  Serious: Yes (Other)
  Sender: FDA-Public Use
  Company Number: AU-ANIPHARMA-2022-AU-000252

PATIENT
  Age: 70 Year
  Sex: Female

DRUGS (13)
  1. ARIMIDEX [Suspect]
     Active Substance: ANASTROZOLE
     Indication: HER2 positive breast cancer
     Route: 048
     Dates: start: 20150526, end: 20151110
  2. DENOSUMAB [Concomitant]
     Active Substance: DENOSUMAB
     Route: 065
     Dates: start: 20180110
  3. CALTRATE WITH VITAMIN D [Concomitant]
     Active Substance: CALCIUM CARBONATE\CHOLECALCIFEROL
     Route: 065
     Dates: start: 20180110
  4. FEMARA [Concomitant]
     Active Substance: LETROZOLE
     Route: 065
     Dates: start: 20170919, end: 20180508
  5. ABRAXANE [Concomitant]
     Active Substance: PACLITAXEL
     Route: 065
     Dates: start: 20210514
  6. TAMOXIFEN CITRATE [Suspect]
     Active Substance: TAMOXIFEN CITRATE
     Route: 048
     Dates: start: 20170221, end: 20170919
  7. FASLODEX [Suspect]
     Active Substance: FULVESTRANT
     Route: 030
  8. ANTHRACYCLINES AND RELATED SUBSTANCE [Concomitant]
     Route: 065
  9. UNSPECIFIED INGREDIENT [Concomitant]
     Active Substance: UNSPECIFIED INGREDIENT
     Route: 065
     Dates: start: 20150519
  10. ZOMETA [Concomitant]
     Active Substance: ZOLEDRONIC ACID
     Dosage: SIX DOSES
     Route: 065
     Dates: start: 201408
  11. HERCEPTIN [Concomitant]
     Active Substance: TRASTUZUMAB
     Route: 065
     Dates: start: 20150519
  12. PERTUZUMAB [Concomitant]
     Active Substance: PERTUZUMAB
     Route: 065
     Dates: start: 20150519
  13. AROMASIN [Concomitant]
     Active Substance: EXEMESTANE
     Route: 065
     Dates: start: 20151110, end: 20170221

REACTIONS (8)
  - Malignant neoplasm progression [Unknown]
  - Neuropathy peripheral [Unknown]
  - Tooth infection [Unknown]
  - Breast cancer recurrent [Unknown]
  - Metastases to bone [Unknown]
  - Acute kidney injury [Unknown]
  - Hydronephrosis [Unknown]
  - Bone marrow oedema [Unknown]
